FAERS Safety Report 9355295 (Version 1)
Quarter: 2013Q2

REPORT INFORMATION
  Report Type: Report from Study
  Country: US (occurrence: US)
  Receive Date: 20130619
  Receipt Date: 20130619
  Transmission Date: 20140414
  Serious: Yes (Other)
  Sender: FDA-Public Use
  Company Number: US-GENZYME-LEUK-1000353

PATIENT
  Age: 79 Year
  Sex: Male
  Weight: 81.36 kg

DRUGS (4)
  1. LEUKINE [Suspect]
     Indication: MALIGNANT MELANOMA
     Dosage: 250 MCG, QD, INDUCTION THERAPY (CYCLE1-4) (ON DAYS 1-14)
     Route: 058
     Dates: start: 20110322
  2. LEUKINE [Suspect]
     Dosage: 250 MCG, QD, MAINTENANCE THERAPY (CYCLE16), (ON DAY 1-14)
     Route: 058
     Dates: start: 20120131, end: 20120213
  3. IPILIMUMAB [Suspect]
     Indication: MALIGNANT MELANOMA
     Dosage: 10 MG/KG, UNK, INDUCTION THERAPY (CYCLE1-4) (OVER 90 MIN ON DAY 1)
     Route: 042
     Dates: start: 20110322, end: 20110322
  4. IPILIMUMAB [Suspect]
     Dosage: 10 MG/KG, UNK, , MAINTENANCE THERAPY (CYCLE16), (OVER 90 MIN ON DAY 1 EVERY 12 WEEKS)
     Route: 042
     Dates: start: 20120131, end: 20120131

REACTIONS (2)
  - Malignant melanoma [Unknown]
  - Pain in extremity [Recovered/Resolved]
